FAERS Safety Report 17827571 (Version 1)
Quarter: 2020Q2

REPORT INFORMATION
  Report Type: Spontaneous
  Country: US (occurrence: US)
  Receive Date: 20200526
  Receipt Date: 20200526
  Transmission Date: 20200714
  Serious: Yes (Hospitalization)
  Sender: FDA-Public Use
  Company Number: None

PATIENT
  Age: 29 Year
  Sex: Female
  Weight: 71.22 kg

DRUGS (5)
  1. LO LOESTRIN FE [Concomitant]
     Active Substance: ETHINYL ESTRADIOL\NORETHINDRONE ACETATE
  2. PANTROPRAZOLE SODIUM [Concomitant]
  3. UCERIS [Concomitant]
     Active Substance: BUDESONIDE
  4. VANCOMYCIN [Concomitant]
     Active Substance: VANCOMYCIN
  5. HUMIRA [Suspect]
     Active Substance: ADALIMUMAB
     Dates: end: 20180819

REACTIONS (3)
  - Colitis ulcerative [None]
  - Nausea [None]
  - Dehydration [None]

NARRATIVE: CASE EVENT DATE: 20180902
